FAERS Safety Report 6295608-5 (Version None)
Quarter: 2009Q3

REPORT INFORMATION
  Report Type: 
  Country: None (occurrence: None)
  Receive Date: 20090731
  Receipt Date: 20090720
  Transmission Date: 20100115
  Serious: Yes (Other)
  Sender: FDA-Public Use
  Company Number: 1000007637

PATIENT
  Sex: 0

DRUGS (3)
  1. CARBAMAZEPINE [Suspect]
     Dosage: 800 MG
  2. OLANZAPINE [Suspect]
  3. CLONAZEPAM [Suspect]

REACTIONS (5)
  - ATRIAL FIBRILLATION [None]
  - DRUG WITHDRAWAL SYNDROME [None]
  - GENERAL PHYSICAL CONDITION ABNORMAL [None]
  - OEDEMA [None]
  - RHABDOMYOLYSIS [None]
